FAERS Safety Report 22289334 (Version 2)
Quarter: 2023Q2

REPORT INFORMATION
  Report Type: Spontaneous
  Country: US (occurrence: US)
  Receive Date: 20230505
  Receipt Date: 20230510
  Transmission Date: 20230721
  Serious: Yes (Other)
  Sender: FDA-Public Use
  Company Number: US-009507513-2304USA007674

PATIENT
  Sex: Female

DRUGS (3)
  1. JANUVIA [Suspect]
     Active Substance: SITAGLIPTIN PHOSPHATE
     Indication: Diabetes mellitus
     Dosage: 100 MG, ONCE A DAY
     Route: 048
     Dates: start: 202204, end: 202210
  2. ELIQUIS [Concomitant]
     Active Substance: APIXABAN
     Indication: Thrombosis
     Dosage: UNK
     Dates: start: 202203
  3. TORSEMIDE [Concomitant]
     Active Substance: TORSEMIDE
     Dosage: UNK

REACTIONS (19)
  - Deafness [Unknown]
  - Deep vein thrombosis [Unknown]
  - Thrombosis [Unknown]
  - Vision blurred [Unknown]
  - Eye laser surgery [Unknown]
  - Eye swelling [Unknown]
  - Peripheral swelling [Recovering/Resolving]
  - Swelling face [Unknown]
  - Pain in extremity [Recovering/Resolving]
  - Movement disorder [Recovering/Resolving]
  - Gait disturbance [Recovering/Resolving]
  - Hypoacusis [Unknown]
  - Blood glucose increased [Recovering/Resolving]
  - Abdominal discomfort [Unknown]
  - Ill-defined disorder [Unknown]
  - Oedema [Unknown]
  - Arthralgia [Unknown]
  - Joint swelling [Unknown]
  - Drug-disease interaction [Unknown]

NARRATIVE: CASE EVENT DATE: 20220101
